FAERS Safety Report 8472082-1 (Version None)
Quarter: 2012Q2

REPORT INFORMATION
  Report Type: 
  Country: None (occurrence: None)
  Receive Date: 20120323
  Receipt Date: 20111012
  Transmission Date: 20120825
  Serious: Yes (Other)
  Sender: FDA-Public Use
  Company Number: 163-21880-11090095

PATIENT
  Age: 78 Year
  Sex: Female
  Weight: 47.6277 kg

DRUGS (12)
  1. REVLIMID [Suspect]
     Indication: MULTIPLE MYELOMA
     Dosage: 25 MG, DAILY X 21/7 DAYS, PO
     Route: 048
     Dates: start: 20110428, end: 20110101
  2. GABAPENTIN [Concomitant]
  3. ASPIRIN [Concomitant]
  4. ANTIBIOTICS (ANTIBIOTICS) [Concomitant]
  5. LOVENOX [Concomitant]
  6. MULTIVITAMIN [Concomitant]
  7. ZOMETA [Concomitant]
  8. MOBIC [Concomitant]
  9. LISINOPRIL [Concomitant]
  10. FLEXERIL [Concomitant]
  11. CARDIZEM [Concomitant]
  12. LEVOTHYROID (LEVOTHYROXINE) [Concomitant]

REACTIONS (2)
  - MULTIPLE MYELOMA [None]
  - DRUG INEFFECTIVE [None]
